FAERS Safety Report 5845287-3 (Version None)
Quarter: 2008Q3

REPORT INFORMATION
  Report Type: 
  Country: None (occurrence: None)
  Receive Date: 20080731
  Receipt Date: 20080423
  Transmission Date: 20090109
  Serious: No
  Sender: FDA-Public Use
  Company Number: US200804006235

PATIENT
  Age: 74 Year
  Sex: Female

DRUGS (5)
  1. BYETTA [Suspect]
     Indication: DIABETES MELLITUS
     Dosage: 5 UG, 2/D, SUBCUTANEOUS; 10 UG, 2/D, SUBCUTANEOUS
     Route: 058
     Dates: end: 20060101
  2. EXENATIDE 5MCG PEN, DISPOSABLE DEVICE (EXENATIDE PEN (5MCG)) PEN,DISPO [Concomitant]
  3. EXENATIDE 10MCG PEN, DISPOSABLE DEVICE (EXENATIDE PEN (10MCG)) PEN,DIS [Concomitant]
  4. AVANDIA [Concomitant]
  5. METFORMIN HCL [Concomitant]

REACTIONS (8)
  - BLOOD GLUCOSE INCREASED [None]
  - DECREASED APPETITE [None]
  - EARLY SATIETY [None]
  - INCORRECT DOSE ADMINISTERED [None]
  - INCREASED APPETITE [None]
  - NAUSEA [None]
  - VOMITING [None]
  - WEIGHT DECREASED [None]
